FAERS Safety Report 4964816-5 (Version None)
Quarter: 2006Q2

REPORT INFORMATION
  Report Type: 
  Country: None (occurrence: None)
  Receive Date: 20060403
  Receipt Date: 20060321
  Transmission Date: 20061013
  Serious: Yes (Hospitalization)
  Sender: FDA-Public Use
  Company Number: GBWYE495121MAR06

PATIENT
  Age: 30 Year
  Sex: Male

DRUGS (3)
  1. EFFEXOR [Suspect]
     Indication: DEPRESSION
     Dosage: 37.5MG ORAL
     Route: 048
     Dates: start: 20060301, end: 20060304
  2. EFFEXOR XR [Suspect]
     Dates: start: 20060305, end: 20060309
  3. MIRTAZAPINE [Concomitant]

REACTIONS (3)
  - BALANCE DISORDER [None]
  - COORDINATION ABNORMAL [None]
  - SPEECH DISORDER [None]
